FAERS Safety Report 7914055-0 (Version None)
Quarter: 2011Q4

REPORT INFORMATION
  Report Type: 
  Country: None (occurrence: None)
  Receive Date: 20111114
  Receipt Date: 20111114
  Transmission Date: 20120403
  Serious: Yes (Hospitalization)
  Sender: FDA-Public Use
  Company Number: None

PATIENT
  Sex: Female
  Weight: 64.8 kg

DRUGS (2)
  1. ETOPOSIDE [Suspect]
     Dosage: 507 MG
     Dates: end: 20111027
  2. CARBOPLATIN [Suspect]
     Dosage: 397 MG
     Dates: end: 20111025

REACTIONS (3)
  - ANAEMIA [None]
  - GASTROENTERITIS VIRAL [None]
  - ASTHENIA [None]
